FAERS Safety Report 4847967-5 (Version None)
Quarter: 2005Q4

REPORT INFORMATION
  Report Type: 
  Country: None (occurrence: None)
  Receive Date: 20051205
  Receipt Date: 20051205
  Transmission Date: 20060501
  Serious: Yes (Hospitalization)
  Sender: FDA-Public Use
  Company Number: None

PATIENT
  Age: 66 Year
  Sex: Male
  Weight: 119.9 kg

DRUGS (2)
  1. GEMCITABINE [Suspect]
     Indication: NON-SMALL CELL LUNG CANCER
     Dosage: 1500MG/M2   ONCE  IV
     Route: 042
     Dates: start: 20051021, end: 20051021
  2. PEMETREXED [Suspect]
     Indication: NON-SMALL CELL LUNG CANCER
     Dosage: 500MG/M2   ONCE  IV
     Route: 042
     Dates: start: 20051021, end: 20051021

REACTIONS (3)
  - FATIGUE [None]
  - FEBRILE NEUTROPENIA [None]
  - HYPERHIDROSIS [None]
